FAERS Safety Report 19027130 (Version 1)
Quarter: 2021Q1

REPORT INFORMATION
  Report Type: Report from Study
  Country: AU (occurrence: AU)
  Receive Date: 20210318
  Receipt Date: 20210318
  Transmission Date: 20210420
  Serious: Yes (Hospitalization)
  Sender: FDA-Public Use
  Company Number: AU-PFIZER INC-2021239587

PATIENT
  Weight: 13.6 kg

DRUGS (12)
  1. ONDANSETRAN [Concomitant]
     Active Substance: ONDANSETRON HYDROCHLORIDE
     Indication: VOMITING
  2. MITOXANTRONE HCL [Suspect]
     Active Substance: MITOXANTRONE HYDROCHLORIDE
     Indication: ACUTE MYELOID LEUKAEMIA
     Dosage: 15 MG/M2, DAILY ((IN D./QUOTID/O.D))
     Route: 042
     Dates: start: 20200905, end: 20200908
  3. CYTARABINE. [Suspect]
     Active Substance: CYTARABINE
     Indication: ACUTE MYELOID LEUKAEMIA
     Dosage: 60.0 MG, 2X/DAY ((B.D/B.I.D))
     Route: 042
     Dates: start: 20200905, end: 20200914
  4. LEVETIRACETAM. [Concomitant]
     Active Substance: LEVETIRACETAM
     Indication: EPILEPSY
     Dosage: 70 MG, 2X/DAY (B.D/B.I.D)
     Dates: start: 20200904, end: 20200911
  5. METOCLOPRAMIDE. [Concomitant]
     Active Substance: METOCLOPRAMIDE
     Indication: NAUSEA
     Dosage: 100 MG, 4X/DAY (Q.D/Q.I.D)
     Dates: start: 20200905
  6. OXYCODONE [Concomitant]
     Active Substance: OXYCODONE
     Indication: ANALGESIC THERAPY
     Dosage: 1.5 MG, DAILY (IN.D/QUOTID/O.D)
     Dates: start: 20200825, end: 20200825
  7. CEFEPIME [Concomitant]
     Active Substance: CEFEPIME HYDROCHLORIDE
     Indication: FEBRILE NEUTROPENIA
     Dosage: 650 MG, 3X/DAY
     Dates: start: 20200904, end: 20200915
  8. ALLOPURINOL. [Concomitant]
     Active Substance: ALLOPURINOL
     Indication: PROPHYLAXIS
     Dosage: 100 MG, 3X/DAY (T.D/T.I.D/T.D.S)
     Dates: start: 20200905, end: 20200908
  9. METOCLOPRAMIDE. [Concomitant]
     Active Substance: METOCLOPRAMIDE
     Indication: VOMITING
  10. PARACETAMOL [Concomitant]
     Active Substance: ACETAMINOPHEN
     Indication: ANALGESIC THERAPY
     Dosage: 190 MG
     Dates: start: 20200904, end: 20200921
  11. GEMTUZUMAB OZOGAMICIN [Suspect]
     Active Substance: GEMTUZUMAB OZOGAMICIN
     Indication: ACUTE MYELOID LEUKAEMIA
     Dosage: 1.7 MG (OTHER)
     Route: 042
     Dates: start: 20200908, end: 20200914
  12. ONDANSETRAN [Concomitant]
     Active Substance: ONDANSETRON HYDROCHLORIDE
     Indication: NAUSEA
     Dosage: 3 MG, 3X/DAY (T.D/T.I.D/T.D.S)
     Dates: start: 20200905

REACTIONS (3)
  - Fungaemia [Recovered/Resolved]
  - Febrile neutropenia [Recovered/Resolved]
  - Colitis [Recovered/Resolved]

NARRATIVE: CASE EVENT DATE: 20200906
